FAERS Safety Report 7299872-5 (Version None)
Quarter: 2011Q1

REPORT INFORMATION
  Report Type: 
  Country: None (occurrence: None)
  Receive Date: 20110208
  Receipt Date: 20110124
  Transmission Date: 20110831
  Serious: Yes (Other)
  Sender: FDA-Public Use
  Company Number: 2011000493

PATIENT
  Age: 76 Year
  Sex: Female
  Weight: 51 kg

DRUGS (4)
  1. ERLOTINIB (ERLOTINIB) (TABLET) (ERLOTINIB) [Suspect]
     Indication: LUNG SQUAMOUS CELL CARCINOMA STAGE UNSPECIFIED
     Dosage: (150 MG, QD), ORAL
     Route: 048
     Dates: start: 20090425, end: 20090615
  2. ENALAPRIL MALEATE [Concomitant]
  3. WARFARIN (WARFARIN) [Concomitant]
  4. LASIX [Concomitant]

REACTIONS (4)
  - NEOPLASM MALIGNANT [None]
  - MENINGITIS BACTERIAL [None]
  - PROTHROMBIN TIME PROLONGED [None]
  - NON-SMALL CELL LUNG CANCER STAGE IIIB [None]
